FAERS Safety Report 12352487 (Version 4)
Quarter: 2016Q3

REPORT INFORMATION
  Report Type: Spontaneous
  Country: US (occurrence: US)
  Receive Date: 20160510
  Receipt Date: 20160708
  Transmission Date: 20161109
  Serious: Yes (Hospitalization, Other)
  Sender: FDA-Public Use
  Company Number: US-BAYER-2016-084942

PATIENT
  Age: 42 Year
  Sex: Female
  Weight: 66 kg

DRUGS (3)
  1. STIVARGA [Suspect]
     Active Substance: REGORAFENIB
     Indication: RECTAL CANCER METASTATIC
     Dosage: 120 MG, QD (21 DAYS IN AND 28 DAYS OFF)
     Route: 048
     Dates: start: 201605, end: 201605
  2. ASPIRIN. [Concomitant]
     Active Substance: ASPIRIN
     Dosage: 162 MG, QD
     Route: 048
  3. STIVARGA [Suspect]
     Active Substance: REGORAFENIB
     Indication: RECTAL CANCER METASTATIC
     Dosage: UNK
     Route: 048
     Dates: start: 20160330, end: 20160411

REACTIONS (26)
  - Urinary tract infection [None]
  - Dysuria [None]
  - Oedema peripheral [None]
  - Hypersensitivity [None]
  - Pyrexia [Recovered/Resolved]
  - Mental status changes [Recovered/Resolved]
  - Glossodynia [None]
  - Dysarthria [Recovered/Resolved]
  - Constipation [None]
  - Dysphagia [None]
  - Coordination abnormal [None]
  - Sepsis [None]
  - Fatigue [None]
  - Pain in extremity [None]
  - Gait disturbance [Recovered/Resolved]
  - Colorectal cancer stage IV [None]
  - Swollen tongue [None]
  - Burning sensation [None]
  - Metastases to lung [None]
  - Mucosal inflammation [None]
  - Secretion discharge [None]
  - Speech disorder [None]
  - Skin exfoliation [None]
  - Posterior reversible encephalopathy syndrome [Recovered/Resolved]
  - Dysphonia [Recovered/Resolved]
  - Abdominal tenderness [None]

NARRATIVE: CASE EVENT DATE: 20160408
